FAERS Safety Report 7144908-5 (Version None)
Quarter: 2010Q4

REPORT INFORMATION
  Report Type: 
  Country: None (occurrence: None)
  Receive Date: 20101122
  Receipt Date: 20101115
  Transmission Date: 20110411
  Serious: Yes (Death)
  Sender: FDA-Public Use
  Company Number: 2010SP051897

PATIENT
  Age: 50 Year
  Sex: Female

DRUGS (8)
  1. MIRTAZAPINE [Suspect]
     Indication: PRODUCT USED FOR UNKNOWN INDICATION
     Dosage: PO
     Route: 048
  2. ALCOHOL (ETHANOL) [Suspect]
     Indication: PRODUCT USED FOR UNKNOWN INDICATION
  3. LEVOMEPROMAZINE [Concomitant]
  4. ETHYL LOFLAZEPATE [Concomitant]
  5. BROTIZOLAM [Concomitant]
  6. SENNOSIDE A+B [Concomitant]
  7. ETIZOLAM [Concomitant]
  8. ZOPICLONE [Concomitant]

REACTIONS (2)
  - DRUG TOXICITY [None]
  - MULTIPLE DRUG OVERDOSE [None]
